FAERS Safety Report 19775869 (Version 1)
Quarter: 2021Q3

REPORT INFORMATION
  Report Type: Spontaneous
  Country: DE (occurrence: DE)
  Receive Date: 20210902
  Receipt Date: 20210902
  Transmission Date: 20211014
  Serious: Yes (Hospitalization)
  Sender: FDA-Public Use
  Company Number: DE-DRREDDYS-SPO/GER/21/0139469

PATIENT
  Age: 1 Day
  Sex: Female
  Weight: 1.15 kg

DRUGS (2)
  1. INSULIN [Concomitant]
     Active Substance: INSULIN NOS
     Indication: PRODUCT USED FOR UNKNOWN INDICATION
  2. VENLAFAXINE [Suspect]
     Active Substance: VENLAFAXINE HYDROCHLORIDE
     Indication: DEPRESSION
     Dosage: 150 (MG/D)
     Dates: start: 20200507, end: 20201213

REACTIONS (8)
  - Neonatal respiratory distress syndrome [Recovered/Resolved]
  - Foetal exposure during pregnancy [Unknown]
  - Oxygen saturation decreased [Recovered/Resolved]
  - Neonatal seizure [Recovered/Resolved]
  - Temperature regulation disorder [Recovered/Resolved]
  - Atrial septal defect [Unknown]
  - Bradycardia neonatal [Recovered/Resolved]
  - Selective eating disorder [Recovered/Resolved]

NARRATIVE: CASE EVENT DATE: 20201213
